FAERS Safety Report 9501631 (Version 2)
Quarter: 2013Q4

REPORT INFORMATION
  Report Type: Spontaneous
  Country: GB (occurrence: GB)
  Receive Date: 20130905
  Receipt Date: 20131126
  Transmission Date: 20140711
  Serious: Yes (Hospitalization)
  Sender: FDA-Public Use
  Company Number: GB-TEVA-429618ISR

PATIENT
  Age: 86 Year
  Sex: Female
  Weight: 63.7 kg

DRUGS (7)
  1. NITROFURANTOIN [Suspect]
     Indication: URINARY TRACT INFECTION
     Dosage: 400 MILLIGRAM DAILY;
     Route: 048
     Dates: start: 20130808, end: 20130812
  2. ALENDRONATE [Concomitant]
  3. CALCICHEW D3 [Concomitant]
  4. OLMESARTAN [Concomitant]
  5. DIGOXIN [Concomitant]
  6. WARFARIN [Concomitant]
  7. TRUVADA [Concomitant]

REACTIONS (5)
  - Nausea [Recovered/Resolved]
  - Retching [Recovered/Resolved]
  - Diarrhoea [Recovered/Resolved]
  - Renal failure acute [Recovered/Resolved]
  - Drug prescribing error [Unknown]
